FAERS Safety Report 25416489 (Version 2)
Quarter: 2025Q3

REPORT INFORMATION
  Report Type: Spontaneous
  Country: JP (occurrence: JP)
  Receive Date: 20250610
  Receipt Date: 20250731
  Transmission Date: 20251020
  Serious: Yes (Death, Other)
  Sender: GILEAD
  Company Number: JP-GILEAD-2025-0716165

PATIENT
  Age: 71 Year
  Sex: Female

DRUGS (22)
  1. VEKLURY [Suspect]
     Active Substance: REMDESIVIR
     Indication: COVID-19 pneumonia
     Route: 065
     Dates: start: 20220218, end: 20220218
  2. VEKLURY [Suspect]
     Active Substance: REMDESIVIR
     Route: 065
     Dates: start: 20220219, end: 20220222
  3. VEKLURY [Suspect]
     Active Substance: REMDESIVIR
     Route: 065
     Dates: start: 20220308, end: 20220317
  4. VEKLURY [Suspect]
     Active Substance: REMDESIVIR
     Route: 065
     Dates: start: 20220328, end: 20220406
  5. DEXAMETHASONE [Concomitant]
     Active Substance: DEXAMETHASONE
     Indication: COVID-19 pneumonia
     Route: 042
     Dates: start: 20220217, end: 20220224
  6. HEPARIN SODIUM [Concomitant]
     Active Substance: HEPARIN SODIUM
     Indication: Thrombosis prophylaxis
     Dates: start: 20220217, end: 20220319
  7. CEFTRIAXONE [Concomitant]
     Active Substance: CEFTRIAXONE
     Dates: start: 20220217, end: 20220218
  8. AZITHROMYCIN DIHYDRATE [Concomitant]
     Active Substance: AZITHROMYCIN DIHYDRATE
     Dates: start: 202202
  9. PREDNISOLONE [Concomitant]
     Active Substance: PREDNISOLONE
     Indication: COVID-19 pneumonia
     Route: 048
     Dates: start: 20220225, end: 20220227
  10. PREDNISOLONE [Concomitant]
     Active Substance: PREDNISOLONE
     Route: 048
     Dates: start: 20220228, end: 20220308
  11. METHYLPREDNISOLONE [Concomitant]
     Active Substance: METHYLPREDNISOLONE
     Indication: COVID-19 pneumonia
     Dates: start: 20220308, end: 20220310
  12. METHYLPREDNISOLONE [Concomitant]
     Active Substance: METHYLPREDNISOLONE
     Dates: start: 20220311, end: 202203
  13. METHYLPREDNISOLONE [Concomitant]
     Active Substance: METHYLPREDNISOLONE
     Dates: start: 202203, end: 202203
  14. METHYLPREDNISOLONE [Concomitant]
     Active Substance: METHYLPREDNISOLONE
     Dates: start: 202203, end: 202203
  15. METHYLPREDNISOLONE [Concomitant]
     Active Substance: METHYLPREDNISOLONE
     Dates: start: 202203, end: 202203
  16. METHYLPREDNISOLONE [Concomitant]
     Active Substance: METHYLPREDNISOLONE
     Dates: start: 202203, end: 202203
  17. METHYLPREDNISOLONE [Concomitant]
     Active Substance: METHYLPREDNISOLONE
     Dates: start: 202204
  18. GANCICLOVIR [Concomitant]
     Active Substance: GANCICLOVIR
     Indication: Cytomegalovirus viraemia
     Route: 042
     Dates: start: 20220324, end: 20220401
  19. GLOBULIN [Concomitant]
     Indication: Hypogammaglobulinaemia
     Route: 042
     Dates: start: 20220324
  20. FOSCAVIR [Concomitant]
     Active Substance: FOSCARNET SODIUM
     Dates: start: 20220406
  21. NAFAMOSTAT MESYLATE [Concomitant]
     Active Substance: NAFAMOSTAT MESYLATE
     Dates: start: 20220404
  22. MEROPENEM [Concomitant]
     Active Substance: MEROPENEM
     Dates: start: 20220411

REACTIONS (3)
  - SARS-CoV-2 viraemia [Fatal]
  - Drug resistance mutation [Unknown]
  - Product use issue [Recovered/Resolved]

NARRATIVE: CASE EVENT DATE: 20220201
